FAERS Safety Report 6681400-6 (Version None)
Quarter: 2010Q2

REPORT INFORMATION
  Report Type: 
  Country: None (occurrence: None)
  Receive Date: 20100414
  Receipt Date: 20100408
  Transmission Date: 20101027
  Serious: Yes (Congenital Anomaly)
  Sender: FDA-Public Use
  Company Number: B0642558A

PATIENT

DRUGS (5)
  1. KIVEXA [Suspect]
     Indication: HIV INFECTION
     Dates: start: 20070101, end: 20070901
  2. COMBIVIR [Suspect]
     Indication: HIV INFECTION
     Dates: start: 20070801, end: 20070905
  3. EFAVIRENZ [Suspect]
     Indication: HIV INFECTION
     Dates: start: 20021001, end: 20070816
  4. KALETRA [Suspect]
     Indication: HIV INFECTION
     Dates: start: 20070920
  5. VIRAMUNE [Suspect]
     Indication: HIV INFECTION
     Dates: start: 20070816, end: 20070830

REACTIONS (6)
  - CARDIAC MALPOSITION [None]
  - CONGENITAL HEPATOBILIARY ANOMALY [None]
  - DEFORMITY THORAX [None]
  - DIAPHRAGMATIC APLASIA [None]
  - EXOMPHALOS [None]
  - MICROCEPHALY [None]
